FAERS Safety Report 10038091 (Version 1)
Quarter: 2014Q1

REPORT INFORMATION
  Report Type: Spontaneous
  Country: US (occurrence: None)
  Receive Date: 20140306
  Receipt Date: 20140306
  Transmission Date: 20141002
  Serious: Yes (Other)
  Sender: FDA-Public Use
  Company Number: 163-21880-13043773

PATIENT
  Age: 87 Year
  Sex: Female

DRUGS (9)
  1. REVLIMID (LENALIDOMIDE) (10 MILLIGRAM, CAPSULES) [Suspect]
     Indication: PLASMA CELL MYELOMA
     Dosage: 21 IN 21 D
     Route: 048
     Dates: start: 20120319
  2. AMITIZA (LUBIPROSTONE) [Concomitant]
  3. ASPIRIN-81 (ACETYLSALICYLIC ACID) [Concomitant]
  4. BISOPROLOL FUMARATE (BISOPROLOL FUMARATE) [Concomitant]
  5. CALCIUM (CALCIUM) [Concomitant]
  6. COUMADIN (WARFARIN SODIUM) [Concomitant]
  7. DEXAMETHASONE (DEXAMETHASONE) [Concomitant]
  8. DOXYCYCLINE HYCLATE (DOXYCYCLINE HYCLATE) [Concomitant]
  9. ECHINACEA (ECHINACEA EXTRACT) [Concomitant]

REACTIONS (1)
  - Pancytopenia [None]
